FAERS Safety Report 15768031 (Version 1)
Quarter: 2018Q4

REPORT INFORMATION
  Report Type: Spontaneous
  Country: JP (occurrence: JP)
  Receive Date: 20181227
  Receipt Date: 20181227
  Transmission Date: 20190205
  Serious: Yes (Other)
  Sender: FDA-Public Use
  Company Number: JP-PFIZER INC-2018481208

PATIENT
  Age: 67 Year
  Sex: Female
  Weight: 52 kg

DRUGS (8)
  1. KIPRES [Concomitant]
     Active Substance: MONTELUKAST SODIUM
  2. SYMBICORT [Concomitant]
     Active Substance: BUDESONIDE\FORMOTEROL FUMARATE DIHYDRATE
  3. CHAMPIX 1MG [Suspect]
     Active Substance: VARENICLINE TARTRATE
     Indication: NICOTINE DEPENDENCE
     Dosage: 1 MG, 2X/DAY
     Route: 048
     Dates: start: 20181010, end: 20181107
  4. FLUITRAN [Concomitant]
     Active Substance: TRICHLORMETHIAZIDE
  5. MEPTIN [Concomitant]
     Active Substance: PROCATEROL HYDROCHLORIDE
  6. AMLODIN [Concomitant]
     Active Substance: AMLODIPINE BESYLATE
     Dosage: UNK
     Route: 048
  7. THEO-DUR [Concomitant]
     Active Substance: THEOPHYLLINE ANHYDROUS
  8. AMBROXOL [AMBROXOL HYDROCHLORIDE] [Concomitant]

REACTIONS (20)
  - Fall [Recovered/Resolved]
  - Contusion [Recovered/Resolved]
  - Nausea [Unknown]
  - Gamma-glutamyltransferase increased [Unknown]
  - Cough [Unknown]
  - Productive cough [Recovered/Resolved]
  - Insomnia [Recovered/Resolved]
  - Decreased appetite [Unknown]
  - Electrocardiogram QT prolonged [Unknown]
  - Rhinorrhoea [Recovered/Resolved]
  - Ventricular extrasystoles [Unknown]
  - Syncope [Recovered/Resolved]
  - Dysphoria [Recovered/Resolved]
  - Vomiting [Unknown]
  - Pain [Unknown]
  - Blood alkaline phosphatase increased [Unknown]
  - Nocturnal dyspnoea [Recovered/Resolved]
  - Ventricular fibrillation [Unknown]
  - Headache [Unknown]
  - Protein total increased [Unknown]

NARRATIVE: CASE EVENT DATE: 20181015
